FAERS Safety Report 6760833-3 (Version None)
Quarter: 2010Q2

REPORT INFORMATION
  Report Type: 
  Country: None (occurrence: None)
  Receive Date: 20100604
  Receipt Date: 20100520
  Transmission Date: 20101027
  Serious: Yes (Death, Hospitalization)
  Sender: FDA-Public Use
  Company Number: 2010001961

PATIENT
  Age: 70 Year
  Sex: Male
  Weight: 70 kg

DRUGS (19)
  1. ERLOTINIB HYDROCHLORIDE [Suspect]
     Indication: NON-SMALL CELL LUNG CANCER
     Dosage: 150 MG QD ORAL
     Route: 048
     Dates: start: 20100430, end: 20100518
  2. CLOPIDOGREL BISULFATE [Concomitant]
  3. DALTEPARIN SODIUM [Concomitant]
  4. DEXAMETHASONE [Concomitant]
  5. DOCUSATE SODIUM (DOCUSATE SODIUM) [Concomitant]
  6. EXETIMIBE-SIMVASTATIN (SIMVASTATIN) [Concomitant]
  7. FAMOTIDIINE (FAMOTIDINE) [Concomitant]
  8. FENTANYL-100 [Concomitant]
  9. IPRATROPIUM BROMIDE [Concomitant]
  10. IRBESARTAN [Concomitant]
  11. LEVALBUTEROL HCL [Concomitant]
  12. METOPROLOL SUCCINATE EXTENDED RELEASE [Concomitant]
  13. MORPHINE [Concomitant]
  14. NIACIN [Concomitant]
  15. PROCHLORPERAZINE EDISYLATE [Concomitant]
  16. SODIUM CHLORIDE 0.9% [Concomitant]
  17. XYLOXYLIN [Concomitant]
  18. SENNOSIDES [Concomitant]
  19. ASPIRIN [Concomitant]

REACTIONS (4)
  - ATELECTASIS [None]
  - MALIGNANT NEOPLASM PROGRESSION [None]
  - NON-SMALL CELL LUNG CANCER METASTATIC [None]
  - PULMONARY EMBOLISM [None]
